FAERS Safety Report 22040099 (Version 1)
Quarter: 2023Q1

REPORT INFORMATION
  Report Type: Spontaneous
  Country: US (occurrence: US)
  Receive Date: 20230227
  Receipt Date: 20230227
  Transmission Date: 20230417
  Serious: No
  Sender: FDA-Public Use
  Company Number: US-PFIZER INC-202300081170

PATIENT
  Age: 63 Year
  Sex: Female

DRUGS (5)
  1. PAXLOVID [Suspect]
     Active Substance: NIRMATRELVIR\RITONAVIR
     Indication: COVID-19 treatment
     Dosage: UNK
     Route: 048
     Dates: start: 20230217, end: 20230221
  2. VENLAFAXINE HYDROCHLORIDE [Concomitant]
     Active Substance: VENLAFAXINE HYDROCHLORIDE
     Dosage: UNK
     Route: 048
  3. CRESTOR [Concomitant]
     Active Substance: ROSUVASTATIN CALCIUM
     Dosage: UNK
     Route: 048
  4. LISINOPRIL [Concomitant]
     Active Substance: LISINOPRIL
     Dosage: 10 MG, DAILY
  5. OMEPRAZOLE [Concomitant]
     Active Substance: OMEPRAZOLE
     Dosage: 20 MG, DAILY

REACTIONS (5)
  - Muscular weakness [Recovered/Resolved]
  - Arthralgia [Recovered/Resolved]
  - Arthralgia [Recovered/Resolved]
  - Pyrexia [Recovered/Resolved]
  - Lymphadenopathy [Unknown]

NARRATIVE: CASE EVENT DATE: 20230220
